FAERS Safety Report 7658288 (Version 2)
Quarter: 2018Q1

REPORT INFORMATION
  Report Type: Spontaneous
  Country: FR (occurrence: FR)
  Receive Date: 20101105
  Receipt Date: 20180222
  Transmission Date: 20180509
  Serious: No
  Sender: FDA-Public Use
  Company Number: FR-ELI_LILLY_AND_COMPANY-FR201010005826

PATIENT
  Sex: Female

DRUGS (1)
  1. ZYPREXA [Suspect]
     Active Substance: OLANZAPINE
     Indication: SLEEP DISORDER
     Dosage: 7.5 MG, DAILY
     Route: 048

REACTIONS (14)
  - Fatigue [Unknown]
  - Constipation [Unknown]
  - Varicose vein [Not Recovered/Not Resolved]
  - Sleep apnoea syndrome [Not Recovered/Not Resolved]
  - Weight increased [Not Recovered/Not Resolved]
  - Somnolence [Unknown]
  - Blood glucose increased [Unknown]
  - Venous thrombosis limb [Unknown]
  - Blood pressure increased [Unknown]
  - Hunger [Unknown]
  - Haemorrhoids [Unknown]
  - Abdominal pain upper [Not Recovered/Not Resolved]
  - Lipase increased [Unknown]
  - Dry mouth [Unknown]

NARRATIVE: CASE EVENT DATE: 2009
